FAERS Safety Report 20837607 (Version 2)
Quarter: 2025Q1

REPORT INFORMATION
  Report Type: Spontaneous
  Country: US (occurrence: US)
  Receive Date: 20220517
  Receipt Date: 20250102
  Transmission Date: 20250408
  Serious: Yes (Other)
  Sender: BRISTOL-MYERS SQUIBB COMPANY
  Company Number: US-BRISTOL-MYERS SQUIBB COMPANY-2022-034762

PATIENT
  Age: 80 Year
  Sex: Female

DRUGS (14)
  1. REVLIMID [Suspect]
     Active Substance: LENALIDOMIDE
     Indication: Plasma cell myeloma
     Route: 048
     Dates: start: 20220312
  2. ELIQUIS [Concomitant]
     Active Substance: APIXABAN
  3. AMINOSALICYLATE CALCIUM [Concomitant]
     Active Substance: AMINOSALICYLATE CALCIUM
  4. XGEVA [Concomitant]
     Active Substance: DENOSUMAB
  5. XGEVA [Concomitant]
     Active Substance: DENOSUMAB
  6. VITAMIN B6 [Concomitant]
     Active Substance: PYRIDOXINE HYDROCHLORIDE
  7. DEXAMETHASONE [Concomitant]
     Active Substance: DEXAMETHASONE
  8. VELCADE [Concomitant]
     Active Substance: BORTEZOMIB
  9. ASPIRIN [Concomitant]
     Active Substance: ASPIRIN
  10. DOFETILIDE [Concomitant]
     Active Substance: DOFETILIDE
  11. GABAPENTIN [Concomitant]
     Active Substance: GABAPENTIN
  12. VITAMINS NOS [Concomitant]
     Active Substance: VITAMINS
  13. PANTOPRAZOLE [Concomitant]
     Active Substance: PANTOPRAZOLE
  14. ATORVASTATIN [Concomitant]
     Active Substance: ATORVASTATIN

REACTIONS (1)
  - Hypocalcaemia [Unknown]

NARRATIVE: CASE EVENT DATE: 20220401
